FAERS Safety Report 21475669 (Version 2)
Quarter: 2022Q4

REPORT INFORMATION
  Report Type: Report from Study
  Country: FR (occurrence: None)
  Receive Date: 20221019
  Receipt Date: 20221103
  Transmission Date: 20230113
  Serious: Yes (Other)
  Sender: FDA-Public Use
  Company Number: FR-Merck Healthcare KGaA-9351929

PATIENT
  Age: 9 Year
  Sex: Female
  Weight: 21 kg

DRUGS (2)
  1. SAIZEN [Suspect]
     Active Substance: SOMATROPIN
     Indication: Short stature
     Route: 058
     Dates: start: 20220909
  2. SAIZEN [Suspect]
     Active Substance: SOMATROPIN
     Indication: Pituitary hypoplasia

REACTIONS (8)
  - Vomiting [Recovered/Resolved]
  - Asthenia [Recovered/Resolved]
  - Somnolence [Unknown]
  - Fatigue [Unknown]
  - Headache [Recovered/Resolved]
  - Anxiety [Unknown]
  - Injection site pain [Not Recovered/Not Resolved]
  - Inappropriate schedule of product administration [Unknown]

NARRATIVE: CASE EVENT DATE: 20220909
